FAERS Safety Report 7201928-X (Version None)
Quarter: 2010Q4

REPORT INFORMATION
  Report Type: 
  Country: None (occurrence: None)
  Receive Date: 20101229
  Receipt Date: 20101222
  Transmission Date: 20110411
  Serious: Yes (Other)
  Sender: FDA-Public Use
  Company Number: DE-PFIZER INC-2010168729

PATIENT
  Age: 70 Year
  Sex: Female

DRUGS (3)
  1. XALATAN [Suspect]
     Indication: GLAUCOMA
     Dosage: UNK, 1X/DAY
     Dates: start: 20080401, end: 20090401
  2. TAFLUPROST [Suspect]
     Indication: GLAUCOMA
     Dosage: UNK, 1X/DAY
     Dates: start: 20080701
  3. ALPHAGAN [Concomitant]
     Indication: GLAUCOMA
     Dosage: UNK, 3X/DAY
     Dates: start: 20101001

REACTIONS (1)
  - CORNEAL THINNING [None]
